FAERS Safety Report 4357937-1 (Version None)
Quarter: 2004Q2

REPORT INFORMATION
  Report Type: 
  Country: None (occurrence: None)
  Receive Date: 20040514
  Receipt Date: 20040416
  Transmission Date: 20050107
  Serious: Yes (Life-Threatening, Hospitalization, Other)
  Sender: FDA-Public Use
  Company Number: CA-BRISTOL-MYERS SQUIBB COMPANY-12564746

PATIENT
  Age: 86 Year
  Sex: Female

DRUGS (8)
  1. TEQUIN [Suspect]
     Indication: BRONCHITIS
     Route: 048
     Dates: start: 20040331, end: 20040410
  2. SPIRONOLACTONE [Concomitant]
  3. LASIX [Concomitant]
     Dosage: IN THE MORNING
  4. ASPIRIN [Concomitant]
  5. NORVASC [Concomitant]
  6. LISINOPRIL [Concomitant]
  7. RANITIDINE [Concomitant]
  8. METOPROLOL [Concomitant]

REACTIONS (3)
  - CARDIAC FAILURE CONGESTIVE [None]
  - DIABETIC HYPEROSMOLAR COMA [None]
  - HYPERGLYCAEMIA [None]
